FAERS Safety Report 17594780 (Version 1)
Quarter: 2020Q1

REPORT INFORMATION
  Report Type: Spontaneous
  Country: FR (occurrence: FR)
  Receive Date: 20200327
  Receipt Date: 20200327
  Transmission Date: 20200409
  Serious: No
  Sender: FDA-Public Use
  Company Number: FR-CANTON LABORATORIES, LLC-2082079

PATIENT
  Age: 36 Year
  Sex: Female

DRUGS (3)
  1. CERAZETTE [Concomitant]
     Route: 048
  2. PERINDOPRIL [Concomitant]
     Active Substance: PERINDOPRIL
     Route: 065
  3. NAPROSYN [Suspect]
     Active Substance: NAPROXEN
     Indication: INFECTION
     Route: 048
     Dates: start: 201603

REACTIONS (1)
  - Behcet^s syndrome [Recovered/Resolved]

NARRATIVE: CASE EVENT DATE: 201603
